FAERS Safety Report 16509546 (Version 1)
Quarter: 2019Q3

REPORT INFORMATION
  Report Type: Spontaneous
  Country: US (occurrence: US)
  Receive Date: 20190701
  Receipt Date: 20190701
  Transmission Date: 20191004
  Serious: Yes (Hospitalization)
  Sender: FDA-Public Use
  Company Number: None

PATIENT
  Age: 38 Year
  Sex: Male

DRUGS (2)
  1. NO MED LIST AVAILABLE [Concomitant]
  2. COSENTYX [Suspect]
     Active Substance: SECUKINUMAB
     Indication: PSORIASIS
     Dosage: ?          OTHER FREQUENCY:2 PENS ONCE A MTH;?
     Route: 058
     Dates: start: 20190123

REACTIONS (2)
  - Therapy cessation [None]
  - Pharyngitis streptococcal [None]

NARRATIVE: CASE EVENT DATE: 20190525
